FAERS Safety Report 9146889 (Version 1)
Quarter: 2013Q1

REPORT INFORMATION
  Report Type: Spontaneous
  Country: PH (occurrence: PH)
  Receive Date: 20130307
  Receipt Date: 20130307
  Transmission Date: 20140127
  Serious: Yes (Hospitalization)
  Sender: FDA-Public Use
  Company Number: PH-BAXTER-2013BAX007965

PATIENT
  Sex: Male

DRUGS (4)
  1. DIANEAL PD2 WITH 1.5% DEXTROSE [Suspect]
     Indication: PERITONEAL DIALYSIS
     Route: 033
     Dates: start: 20110913
  2. DIANEAL PD2 WITH 1.5% DEXTROSE [Suspect]
     Route: 033
  3. DIANEAL PD2 WITH 4.25% DEXTROSE [Suspect]
     Indication: PERITONEAL DIALYSIS
     Route: 033
     Dates: start: 20110913
  4. DIANEAL PD2 WITH 4.25% DEXTROSE [Suspect]
     Route: 033

REACTIONS (1)
  - Peritoneal dialysis complication [Unknown]
